FAERS Safety Report 7290589-X (Version None)
Quarter: 2011Q1

REPORT INFORMATION
  Report Type: 
  Country: None (occurrence: None)
  Receive Date: 20110214
  Receipt Date: 20110202
  Transmission Date: 20110831
  Serious: Yes (Other)
  Sender: FDA-Public Use
  Company Number: US-SANOFI-AVENTIS-2011SA004717

PATIENT
  Age: 83 Year
  Sex: Female
  Weight: 67.27 kg

DRUGS (5)
  1. IRON [Concomitant]
  2. ASCORBIC ACID [Concomitant]
  3. TRIAMTERENE AND HYDROCHLOROTHIAZIDE [Concomitant]
     Indication: HYPERTENSION
     Dosage: 37.5MG/25MG
  4. MULTAQ [Suspect]
     Indication: ATRIAL FIBRILLATION
     Route: 048
     Dates: start: 20100901, end: 20101009
  5. METOPROLOL [Concomitant]
     Indication: HYPERTENSION

REACTIONS (2)
  - HEPATOCELLULAR INJURY [None]
  - BLOOD BILIRUBIN INCREASED [None]
